FAERS Safety Report 12107622 (Version 1)
Quarter: 2016Q1

REPORT INFORMATION
  Report Type: Spontaneous
  Country: US (occurrence: US)
  Receive Date: 20160224
  Receipt Date: 20160224
  Transmission Date: 20160526
  Serious: No
  Sender: FDA-Public Use
  Company Number: US-JNJFOC-20160117933

PATIENT
  Age: 61 Year
  Sex: Female

DRUGS (3)
  1. INVOKANA [Suspect]
     Active Substance: CANAGLIFLOZIN
     Indication: GLYCOSYLATED HAEMOGLOBIN INCREASED
     Route: 048
  2. INVOKANA [Suspect]
     Active Substance: CANAGLIFLOZIN
     Indication: GLYCOSYLATED HAEMOGLOBIN INCREASED
     Route: 048
  3. INVOKANA [Suspect]
     Active Substance: CANAGLIFLOZIN
     Indication: GLYCOSYLATED HAEMOGLOBIN INCREASED
     Route: 048

REACTIONS (2)
  - Pruritus [Recovered/Resolved]
  - Adverse event [Unknown]
